FAERS Safety Report 5728017-5 (Version None)
Quarter: 2008Q2

REPORT INFORMATION
  Report Type: 
  Country: None (occurrence: None)
  Receive Date: 20080430
  Receipt Date: 20080226
  Transmission Date: 20081010
  Serious: No
  Sender: FDA-Public Use
  Company Number: 2008PV034385

PATIENT
  Age: 67 Year
  Sex: Female

DRUGS (5)
  1. SYMLIN [Suspect]
     Indication: DIABETES MELLITUS
     Dosage: 60 MCG;TID;SC
     Route: 058
     Dates: start: 20080225
  2. SYMLIN [Suspect]
     Indication: DIABETES MELLITUS
     Dosage: 120 MCG;TID;SC
     Route: 058
     Dates: start: 20080101, end: 20080224
  3. NOVOLOG [Concomitant]
  4. LANTUS [Concomitant]
  5. GLIMEPIRIDE [Concomitant]

REACTIONS (2)
  - DRUG PRESCRIBING ERROR [None]
  - INJECTION SITE NODULE [None]
